FAERS Safety Report 8580579-9 (Version None)
Quarter: 2012Q3

REPORT INFORMATION
  Report Type: 
  Country: None (occurrence: None)
  Receive Date: 20120808
  Receipt Date: 20120801
  Transmission Date: 20120928
  Serious: Yes (Hospitalization)
  Sender: FDA-Public Use
  Company Number: NL-AMGEN-NLDSP2012049278

PATIENT
  Age: 74 Year
  Sex: Female

DRUGS (2)
  1. CARVEDILOL [Concomitant]
  2. XGEVA [Suspect]
     Indication: PRODUCT USED FOR UNKNOWN INDICATION
     Dosage: 120 MG, Q4WK
     Route: 058
     Dates: start: 20120726

REACTIONS (2)
  - RESPIRATORY TRACT INFECTION [None]
  - DYSPNOEA [None]
